FAERS Safety Report 4456897-2 (Version None)
Quarter: 2004Q3

REPORT INFORMATION
  Report Type: 
  Country: None (occurrence: None)
  Receive Date: 20040921
  Receipt Date: 20040906
  Transmission Date: 20050211
  Serious: Yes (Death)
  Sender: FDA-Public Use
  Company Number: 2004-FF-00520FF

PATIENT
  Age: 82 Year
  Sex: Female

DRUGS (8)
  1. MOBIC [Suspect]
     Indication: BACK PAIN
     Dosage: 15 MG (MG) IM
     Route: 030
     Dates: start: 20040701
  2. MEDIATOR (BENFLUOREX HYDROCHLORIDE) (TA) [Concomitant]
  3. DIAMICRON (GLICLAZIDE) (TA) [Concomitant]
  4. SOPROL (BISOPROLOL FUMARATE) (TA) [Concomitant]
  5. DIAFUSOR (GLYCERYL TRINITRATE) (UNK) [Concomitant]
  6. ASPEGIC (ACETYLSALICYLATE LYSINE) (UNK) [Concomitant]
  7. VIOXX (ROFECOXIB) (KA) [Concomitant]
  8. VASTAREL (NR) [Concomitant]

REACTIONS (1)
  - MYOCARDIAL INFARCTION [None]
